FAERS Safety Report 4315420-3 (Version None)
Quarter: 2004Q1

REPORT INFORMATION
  Report Type: 
  Country: None (occurrence: None)
  Receive Date: 20040309
  Receipt Date: 20040227
  Transmission Date: 20041129
  Serious: Yes (Hospitalization)
  Sender: FDA-Public Use
  Company Number: US-JNJFOC-20040300138

PATIENT
  Sex: Female

DRUGS (1)
  1. REGRANEX [Suspect]
     Indication: OPEN WOUND

REACTIONS (2)
  - DRUG INEFFECTIVE [None]
  - NOSOCOMIAL INFECTION [None]
